FAERS Safety Report 13619158 (Version 1)
Quarter: 2017Q2

REPORT INFORMATION
  Report Type: Spontaneous
  Country: US (occurrence: US)
  Receive Date: 20170606
  Receipt Date: 20170606
  Transmission Date: 20170830
  Serious: No
  Sender: FDA-Public Use
  Company Number: US-AMGEN-USASP2016127200

PATIENT
  Sex: Female

DRUGS (2)
  1. PROCRIT [Suspect]
     Active Substance: ERYTHROPOIETIN
     Indication: MYELODYSPLASTIC SYNDROME
     Dosage: 30,000 UNITS, EVERY TWO WEEKS
     Route: 065
     Dates: end: 201608
  2. PROCRIT [Suspect]
     Active Substance: ERYTHROPOIETIN
     Dosage: UNK UNK, EVERY WEEK
     Route: 065
     Dates: start: 201608

REACTIONS (3)
  - Haemoglobin abnormal [Unknown]
  - Drug dose omission [Unknown]
  - Off label use [Not Recovered/Not Resolved]

NARRATIVE: CASE EVENT DATE: 20160916
